FAERS Safety Report 15640550 (Version 3)
Quarter: 2019Q1

REPORT INFORMATION
  Report Type: Report from Study
  Country: US (occurrence: US)
  Receive Date: 20181120
  Receipt Date: 20190121
  Transmission Date: 20190417
  Serious: Yes (Other)
  Sender: FDA-Public Use
  Company Number: US-ALEXION PHARMACEUTICALS INC.-A201815128

PATIENT
  Sex: Female

DRUGS (2)
  1. SOLIRIS [Suspect]
     Active Substance: ECULIZUMAB
     Dosage: UNK
     Route: 042
  2. SOLIRIS [Suspect]
     Active Substance: ECULIZUMAB
     Indication: PAROXYSMAL NOCTURNAL HAEMOGLOBINURIA
     Dosage: UNK
     Route: 065
     Dates: start: 2016

REACTIONS (23)
  - Cytopenia [Unknown]
  - Diabetes mellitus [Unknown]
  - Neutrophil count decreased [Unknown]
  - Essential hypertension [Unknown]
  - Fatigue [Unknown]
  - Anaemia [Unknown]
  - Hepatic enzyme increased [Unknown]
  - Nausea [Unknown]
  - Pneumonia fungal [Unknown]
  - Hepatitis B core antibody positive [Unknown]
  - Iron overload [Unknown]
  - Decreased appetite [Unknown]
  - Thrombocytopenia [Unknown]
  - Mycobacterium tuberculosis complex test positive [Unknown]
  - Oedema peripheral [Unknown]
  - Hypokalaemia [Unknown]
  - Myelodysplastic syndrome [Unknown]
  - Tachycardia [Unknown]
  - Serum ferritin increased [Unknown]
  - Candida infection [Unknown]
  - Mucosal inflammation [Unknown]
  - Pyrexia [Unknown]
  - Pain in extremity [Unknown]

NARRATIVE: CASE EVENT DATE: 201806
